FAERS Safety Report 20030984 (Version 2)
Quarter: 2021Q4

REPORT INFORMATION
  Report Type: Spontaneous
  Country: FR (occurrence: FR)
  Receive Date: 20211103
  Receipt Date: 20211124
  Transmission Date: 20220303
  Serious: Yes (Death)
  Sender: FDA-Public Use
  Company Number: None

PATIENT
  Age: 62 Year
  Sex: Female
  Weight: 68 kg

DRUGS (17)
  1. URSODIOL [Suspect]
     Active Substance: URSODIOL
     Indication: Product used for unknown indication
     Dosage: 1500 MILLIGRAM DAILY; 500 MG 3 TIMES A DAY
     Route: 048
     Dates: start: 20210915, end: 20211001
  2. FILGRASTIM [Suspect]
     Active Substance: FILGRASTIM
     Indication: Product used for unknown indication
     Dosage: 30 MIU / D, 30 DF
     Route: 042
     Dates: start: 20210928, end: 20211001
  3. PHLOROGLUCINOL [Suspect]
     Active Substance: PHLOROGLUCINOL
     Indication: Product used for unknown indication
     Dosage: ,SOLUTION INJECTABLE IN AMPOULE,40 MG IF NEEDED
     Route: 042
     Dates: start: 20210916, end: 20211001
  4. PREGABALIN [Suspect]
     Active Substance: PREGABALIN
     Indication: Product used for unknown indication
     Dosage: 150 MILLIGRAM DAILY; 75 MG TWICE / DAY
     Route: 048
     Dates: start: 20210916, end: 20211001
  5. MORPHINE SULFATE [Suspect]
     Active Substance: MORPHINE SULFATE
     Indication: Product used for unknown indication
     Dosage: 30 MG / DAY MAXIMUM, UNIT DOSE : 30 MG
     Route: 048
     Dates: start: 20210915, end: 20211001
  6. TERBUTALINE SULFATE [Suspect]
     Active Substance: TERBUTALINE SULFATE
     Indication: Product used for unknown indication
     Dosage: 2L / MN IF NECESSARY
     Route: 045
  7. MEROPENEM [Suspect]
     Active Substance: MEROPENEM
     Indication: Product used for unknown indication
     Dosage: 3 GRAM DAILY; 1G 3 TIMES A DAY  , POWDER FOR SOLUTION FOR INJECTION/INFUSION
     Route: 042
     Dates: start: 20210918, end: 20211001
  8. LANSOPRAZOLE [Suspect]
     Active Substance: LANSOPRAZOLE
     Indication: Product used for unknown indication
     Dosage: 30 MILLIGRAM DAILY; 30 MG PER DAY
     Route: 048
     Dates: start: 20210915, end: 20211001
  9. TRANEXAMIC ACID [Suspect]
     Active Substance: TRANEXAMIC ACID
     Indication: Product used for unknown indication
     Dosage: 3 GRAM DAILY; 3 G PER DAY,  STRENGTH : 0.5 G / 5 ML I.V.
     Route: 042
     Dates: start: 20210919, end: 20211001
  10. BISOPROLOL [Suspect]
     Active Substance: BISOPROLOL
     Indication: Product used for unknown indication
     Dosage: 1.25 MILLIGRAM DAILY; 1,25 MG/DAY
     Route: 048
     Dates: start: 20210915, end: 20211001
  11. FLUCONAZOLE [Suspect]
     Active Substance: FLUCONAZOLE
     Indication: Product used for unknown indication
     Dosage: 800 MILLIGRAM DAILY; 400 MG TWICE / DAY
     Dates: start: 20210916, end: 20211001
  12. CELLCEPT [Suspect]
     Active Substance: MYCOPHENOLATE MOFETIL
     Indication: Product used for unknown indication
     Dosage: 2100 MILLIGRAM DAILY; 700 MG 3 TIMES A DAY
     Route: 042
     Dates: start: 20210915, end: 20211001
  13. METOCLOPRAMIDE [Suspect]
     Active Substance: METOCLOPRAMIDE
     Indication: Product used for unknown indication
     Dosage: SOLUTION FOR INJECTION (IM, IV) IN 5 ML AMPOULE , 10 MG IF NEEDED
     Route: 042
     Dates: start: 20210916, end: 20211001
  14. FUROSEMIDE [Suspect]
     Active Substance: FUROSEMIDE
     Indication: Product used for unknown indication
     Dosage: 80 MILLIGRAM DAILY; 20 MG / 2 ML, SOLUTION FOR INJECTION IN AMPOULE
     Route: 042
     Dates: start: 20210915, end: 20211001
  15. VALACYCLOVIR HYDROCHLORIDE [Suspect]
     Active Substance: VALACYCLOVIR HYDROCHLORIDE
     Indication: Product used for unknown indication
     Dosage: 500 MILLIGRAM DAILY;
     Route: 048
     Dates: start: 20210916, end: 20211001
  16. CYCLOSPORINE [Suspect]
     Active Substance: CYCLOSPORINE
     Indication: Transplant
     Dosage: 250 MILLIGRAM DAILY; SOLUTION FOR INJECTION FOR I.V. INFUSION
     Route: 042
     Dates: start: 20210915, end: 20211001
  17. NEFOPAM [Suspect]
     Active Substance: NEFOPAM
     Indication: Product used for unknown indication
     Dosage: 120 MILLIGRAM DAILY; 20 MG / 2 ML
     Route: 042
     Dates: start: 20210916, end: 20211001

REACTIONS (1)
  - Brain oedema [Fatal]

NARRATIVE: CASE EVENT DATE: 20211001
